FAERS Safety Report 6247213-4 (Version None)
Quarter: 2009Q2

REPORT INFORMATION
  Report Type: 
  Country: None (occurrence: None)
  Receive Date: 20090626
  Receipt Date: 20090623
  Transmission Date: 20091009
  Serious: Yes (Death, Hospitalization, Other)
  Sender: FDA-Public Use
  Company Number: US-WYE-H09870209

PATIENT
  Sex: Female
  Weight: 145 kg

DRUGS (10)
  1. TORISEL [Suspect]
     Indication: ENDOMETRIAL CANCER
     Dosage: 25 MG OVER 30 MIN ON DAYS 1, 8, AND 22 (CYCLE 1)
     Route: 042
     Dates: start: 20090113, end: 20090101
  2. TORISEL [Suspect]
     Dosage: 25 MG OVER 30 MIN ON DAYS 1, 8, 15, AND 22 (CYCLE 2)
     Route: 042
     Dates: start: 20090210, end: 20090101
  3. TORISEL [Suspect]
     Dosage: 25 MG OVER 30 MIN ON DAYS 1, 8, 15, AND 22 (CYCLE 3)
     Route: 042
     Dates: start: 20090310, end: 20090101
  4. TORISEL [Suspect]
     Dosage: 25 MG OVER 30 MIN ON DAYS 1, 8, 15, AND 22 (CYCLE 4)
     Route: 042
     Dates: start: 20090406, end: 20090101
  5. TORISEL [Suspect]
     Dosage: 20 MG GIVEN WEEK 3 ONLY (CYCLE 5)
     Route: 042
     Dates: start: 20090501, end: 20090501
  6. BEVACIZUMAB [Suspect]
     Indication: ENDOMETRIAL CANCER
     Dosage: 10MG/KG OVER 30-90 MIN ON DAY 1 (CYCLE 1)
     Route: 042
     Dates: start: 20090113, end: 20090113
  7. BEVACIZUMAB [Suspect]
     Dosage: 10MG/KG OVER 30-90 MIN DAYS 1 AND 15 (CYCLE 2)
     Route: 042
     Dates: start: 20090210, end: 20090101
  8. BEVACIZUMAB [Suspect]
     Dosage: 10MG/KG OVER 30-90 MIN DAYS 1 AND 15 (CYCLE 3)
     Route: 042
     Dates: start: 20090310, end: 20090101
  9. BEVACIZUMAB [Suspect]
     Dosage: 10MG/KG OVER 30-90 MIN DAYS 1 AND 15 (CYCLE 4)
     Route: 042
     Dates: start: 20090406, end: 20090101
  10. BEVACIZUMAB [Suspect]
     Dosage: 10MG/KG OVER 30-90 MIN DAYS 1 AND 15 (CYCLE 5)
     Route: 042
     Dates: start: 20090504, end: 20090501

REACTIONS (22)
  - ALANINE AMINOTRANSFERASE INCREASED [None]
  - ASPARTATE AMINOTRANSFERASE INCREASED [None]
  - BACK PAIN [None]
  - BLOOD ALKALINE PHOSPHATASE INCREASED [None]
  - BLOOD CHOLESTEROL INCREASED [None]
  - BLOOD PRESSURE SYSTOLIC INCREASED [None]
  - BRAIN NATRIURETIC PEPTIDE INCREASED [None]
  - CARDIO-RESPIRATORY ARREST [None]
  - DIZZINESS [None]
  - DYSPNOEA [None]
  - HAEMATOCRIT DECREASED [None]
  - HEPATIC FUNCTION ABNORMAL [None]
  - HYPERGLYCAEMIA [None]
  - HYPERTRIGLYCERIDAEMIA [None]
  - HYPOTENSION [None]
  - PAIN IN EXTREMITY [None]
  - PNEUMONIA HAEMOPHILUS [None]
  - RENAL IMPAIRMENT [None]
  - SEPSIS [None]
  - SYNCOPE [None]
  - TACHYCARDIA [None]
  - UNRESPONSIVE TO STIMULI [None]
